FAERS Safety Report 4421234-6 (Version None)
Quarter: 2004Q3

REPORT INFORMATION
  Report Type: 
  Country: None (occurrence: None)
  Receive Date: 20040809
  Receipt Date: 20040805
  Transmission Date: 20050211
  Serious: Yes (Other)
  Sender: FDA-Public Use
  Company Number: PHBS2004JP10340

PATIENT

DRUGS (2)
  1. LUDIOMIL [Suspect]
     Dosage: 10 MG, QHS
     Route: 048
  2. SEDIEL [Concomitant]
     Dosage: UNK, UNK
     Route: 065

REACTIONS (1)
  - DYSKINESIA [None]
